FAERS Safety Report 5345127-5 (Version None)
Quarter: 2007Q2

REPORT INFORMATION
  Report Type: 
  Country: None (occurrence: None)
  Receive Date: 20070601
  Receipt Date: 20070524
  Transmission Date: 20071010
  Serious: Yes (Death, Hospitalization)
  Sender: FDA-Public Use
  Company Number: 163-21880-06100923

PATIENT
  Age: 60 Year
  Sex: Female

DRUGS (9)
  1. REVLIMID [Suspect]
     Indication: MULTIPLE MYELOMA
     Dosage: 25-10MG, QD, ORAL
     Route: 048
     Dates: start: 20060811
  2. DECADRON [Concomitant]
  3. RENAL SOFTGEL (VITAMINS) [Concomitant]
  4. METOPROLOL TARTRATE [Concomitant]
  5. FLUCONAZOLE [Concomitant]
  6. OSCAL (CALCIUM CARBONATE) [Concomitant]
  7. DIGOXIN [Concomitant]
  8. GABAPENTIN [Concomitant]
  9. MAGNESIUM OXIDE (MAGNESIUM OXIDE) [Concomitant]

REACTIONS (5)
  - DIALYSIS [None]
  - DISEASE PROGRESSION [None]
  - MULTIPLE MYELOMA [None]
  - RENAL FAILURE [None]
  - RETROPERITONEAL LYMPHADENOPATHY [None]
